FAERS Safety Report 7391507-6 (Version None)
Quarter: 2011Q2

REPORT INFORMATION
  Report Type: 
  Country: None (occurrence: None)
  Receive Date: 20110404
  Receipt Date: 20110307
  Transmission Date: 20111010
  Serious: No
  Sender: FDA-Public Use
  Company Number: US-BAYER-201037681NA

PATIENT
  Sex: Female

DRUGS (9)
  1. CLONAZEPAM [Concomitant]
  2. UNCODEABLE ^UNCLASSIFIABLE^ [Concomitant]
  3. OCELLA [Suspect]
     Indication: ACNE
  4. NEXIUM [Concomitant]
  5. YAZ [Suspect]
     Indication: ACNE
  6. YASMIN [Suspect]
     Indication: ACNE
  7. NEXIUM [Concomitant]
     Dosage: UNK
     Dates: end: 20050101
  8. DICYCLOMINE [Concomitant]
  9. XOPENEX [Concomitant]

REACTIONS (1)
  - INJURY [None]
